FAERS Safety Report 5787189-7 (Version None)
Quarter: 2008Q2

REPORT INFORMATION
  Report Type: 
  Country: None (occurrence: None)
  Receive Date: 20080625
  Receipt Date: 20080613
  Transmission Date: 20081010
  Serious: Yes (Hospitalization, Other)
  Sender: FDA-Public Use
  Company Number: US-JNJFOC-20080604058

PATIENT
  Sex: Female
  Weight: 62.6 kg

DRUGS (1)
  1. REMICADE [Suspect]
     Indication: RHEUMATOID ARTHRITIS
     Route: 042

REACTIONS (6)
  - CHILLS [None]
  - COUGH [None]
  - DIARRHOEA [None]
  - INFUSION RELATED REACTION [None]
  - NECK PAIN [None]
  - RASH [None]
